FAERS Safety Report 6569157-0 (Version None)
Quarter: 2010Q1

REPORT INFORMATION
  Report Type: 
  Country: None (occurrence: None)
  Receive Date: 20100203
  Receipt Date: 20100122
  Transmission Date: 20100710
  Serious: Yes (Other)
  Sender: FDA-Public Use
  Company Number: PHEH2009US10595

PATIENT
  Weight: 72.562 kg

DRUGS (8)
  1. GLEEVEC [Suspect]
     Indication: CHRONIC MYELOID LEUKAEMIA
     Dosage: 400 MG, QD
     Route: 048
     Dates: start: 20081216
  2. LEVALBUTEROL HYDROCHLORIDE [Concomitant]
     Dosage: UNK, AS NEEDED
  3. VICODIN [Concomitant]
     Dosage: 1 TO 2 TABS EVERY 4HRS PRN
     Route: 048
     Dates: start: 20081212
  4. ONDANSETRON HYDROCHLORIDE [Concomitant]
     Dosage: 8 MG, BID
     Route: 048
     Dates: start: 20090105
  5. PREGABALIN [Concomitant]
     Dosage: 75 MG, EVERY DAY AS NEEDED
     Route: 048
     Dates: start: 20090206
  6. METHYLPHENIDATE [Concomitant]
     Dosage: 5 MG, TWICE A DAY AS NEEDED
     Route: 048
     Dates: start: 20090504
  7. ZOLPIDEM TARTRATE [Concomitant]
     Dosage: 10 MG, QD
     Route: 048
  8. CLONAZEPAM [Concomitant]
     Dosage: 0.5 MG, QD
     Dates: start: 20091221

REACTIONS (12)
  - BLOOD MAGNESIUM DECREASED [None]
  - BONE MARROW TRANSPLANT [None]
  - DEPRESSION [None]
  - FACE OEDEMA [None]
  - FLUID RETENTION [None]
  - FOLLICLE CENTRE LYMPHOMA, FOLLICULAR GRADE I, II, III [None]
  - HYPOKALAEMIA [None]
  - LARYNGEAL OEDEMA [None]
  - LARYNGITIS [None]
  - NAUSEA [None]
  - OEDEMA [None]
  - OEDEMA PERIPHERAL [None]
